FAERS Safety Report 24908552 (Version 1)
Quarter: 2025Q1

REPORT INFORMATION
  Report Type: Spontaneous
  Country: US (occurrence: US)
  Receive Date: 20250131
  Receipt Date: 20250131
  Transmission Date: 20250409
  Serious: No
  Sender: ABBVIE
  Company Number: US-ABBVIE-6103908

PATIENT
  Age: 81 Year
  Sex: Male
  Weight: 58.966 kg

DRUGS (2)
  1. LINZESS [Suspect]
     Active Substance: LINACLOTIDE
     Indication: Abdominal pain upper
     Dosage: FORM STRENGTH: 72 MICROGRAM
     Route: 048
     Dates: start: 202501, end: 20250124
  2. LORAZEPAM [Concomitant]
     Active Substance: LORAZEPAM
     Indication: Pain

REACTIONS (4)
  - Amnesia [Recovered/Resolved]
  - Fear [Not Recovered/Not Resolved]
  - Diarrhoea [Unknown]
  - Stool analysis abnormal [Unknown]

NARRATIVE: CASE EVENT DATE: 20250101
